FAERS Safety Report 23090728 (Version 1)
Quarter: 2023Q4

REPORT INFORMATION
  Report Type: Spontaneous
  Country: AT (occurrence: AT)
  Receive Date: 20231020
  Receipt Date: 20231020
  Transmission Date: 20240109
  Serious: Yes (Death, Other)
  Sender: FDA-Public Use
  Company Number: AT-BIOVITRUM-2023-AT-015827

PATIENT
  Sex: Female

DRUGS (2)
  1. EMAPALUMAB [Suspect]
     Active Substance: EMAPALUMAB
     Indication: Epstein-Barr virus infection
  2. EMAPALUMAB [Suspect]
     Active Substance: EMAPALUMAB
     Indication: Haemophagocytic lymphohistiocytosis

REACTIONS (5)
  - Systemic mycosis [Fatal]
  - Gastrointestinal haemorrhage [Unknown]
  - T-cell lymphoma [Unknown]
  - Aplasia [Unknown]
  - Off label use [Unknown]
